FAERS Safety Report 8211570-X (Version None)
Quarter: 2012Q1

REPORT INFORMATION
  Report Type: 
  Country: None (occurrence: None)
  Receive Date: 20120315
  Receipt Date: 20120309
  Transmission Date: 20120608
  Serious: Yes (Hospitalization)
  Sender: FDA-Public Use
  Company Number: US-B.I. PHARMACEUTICALS,INC./RIDGEFIELD-2012-BP-04533BP

PATIENT
  Age: 50 Year
  Sex: Female

DRUGS (8)
  1. GABAPENTIN [Concomitant]
     Dates: start: 20080101
  2. PRAVASTATIN [Concomitant]
     Indication: BLOOD CHOLESTEROL INCREASED
     Dates: start: 20120301
  3. NAPROXAM SODIUM [Concomitant]
     Dates: start: 20080101
  4. DILTIAZIN [Concomitant]
     Indication: HYPERTENSION
     Dates: start: 20120301
  5. NITROGLYCERIN [Concomitant]
  6. SEROQUEL [Concomitant]
     Dates: start: 20060101
  7. FLEXERIL [Concomitant]
  8. SPIRIVA [Suspect]
     Dosage: 18 MCG
     Route: 055
     Dates: start: 20120109

REACTIONS (4)
  - BLOOD CHOLESTEROL INCREASED [None]
  - HYPERTENSION [None]
  - BACK PAIN [None]
  - MYOCARDIAL INFARCTION [None]
